FAERS Safety Report 8190495-2 (Version None)
Quarter: 2012Q1

REPORT INFORMATION
  Report Type: 
  Country: None (occurrence: None)
  Receive Date: 20120307
  Receipt Date: 20120228
  Transmission Date: 20120608
  Serious: Yes (Hospitalization)
  Sender: FDA-Public Use
  Company Number: PHHY2012US017130

PATIENT
  Age: 58 Year
  Sex: Male

DRUGS (3)
  1. METHADON HCL TAB [Concomitant]
     Dosage: 5 MG, TID
  2. RISPERIDONE [Suspect]
     Indication: SCHIZOPHRENIA
     Dosage: 5 MG, UNK
  3. CLONAZEPAM [Concomitant]
     Dosage: 4 MG (IN THE EVENING)

REACTIONS (10)
  - WEIGHT DECREASED [None]
  - GYNAECOMASTIA [None]
  - ASPIRATION [None]
  - DYSPHAGIA [None]
  - DYSPHONIA [None]
  - OROPHARYNGEAL DISCOMFORT [None]
  - EXTRAOCULAR MUSCLE PARESIS [None]
  - BULBAR PALSY [None]
  - DIPLEGIA [None]
  - AREFLEXIA [None]
